FAERS Safety Report 14490492 (Version 2)
Quarter: 2018Q1

REPORT INFORMATION
  Report Type: Spontaneous
  Country: TR (occurrence: TR)
  Receive Date: 20180206
  Receipt Date: 20180314
  Transmission Date: 20180509
  Serious: Yes (Other)
  Sender: FDA-Public Use
  Company Number: TR-LUPIN PHARMACEUTICALS INC.-2018-00602

PATIENT
  Age: 45 Year
  Sex: Female

DRUGS (1)
  1. LEVETIRACETAM TABLETS [Suspect]
     Active Substance: LEVETIRACETAM
     Indication: EPILEPSY
     Dosage: 500 MG, TID
     Route: 065

REACTIONS (3)
  - Hypogammaglobulinaemia [Recovered/Resolved]
  - Aplasia [Recovered/Resolved]
  - B-lymphocyte count decreased [Recovered/Resolved]
